FAERS Safety Report 24828753 (Version 1)
Quarter: 2025Q1

REPORT INFORMATION
  Report Type: Spontaneous
  Country: US (occurrence: US)
  Receive Date: 20250110
  Receipt Date: 20250110
  Transmission Date: 20250409
  Serious: Yes (Other)
  Sender: JOHNSON AND JOHNSON
  Company Number: US-JNJFOC-20241291610

PATIENT
  Sex: Female

DRUGS (2)
  1. STELARA [Suspect]
     Active Substance: USTEKINUMAB
     Indication: Colitis
     Route: 058
  2. STELARA [Suspect]
     Active Substance: USTEKINUMAB
     Indication: Proctitis

REACTIONS (6)
  - Osteomyelitis [Unknown]
  - Immune system disorder [Unknown]
  - Colitis [Not Recovered/Not Resolved]
  - Localised infection [Unknown]
  - Proctitis [Not Recovered/Not Resolved]
  - Drug ineffective [Unknown]
